FAERS Safety Report 15186304 (Version 1)
Quarter: 2018Q3

REPORT INFORMATION
  Report Type: Report from Study
  Country: US (occurrence: US)
  Receive Date: 20180723
  Receipt Date: 20180723
  Transmission Date: 20181010
  Serious: No
  Sender: FDA-Public Use
  Company Number: US-EXELIXIS-CABO-18014147

PATIENT
  Sex: Male

DRUGS (16)
  1. OMEPRAZOLE. [Concomitant]
     Active Substance: OMEPRAZOLE
     Dosage: UNK
  2. CABOMETYX [Suspect]
     Active Substance: CABOZANTINIB S-MALATE
     Dosage: 60 MG, QD
     Route: 048
     Dates: start: 20180421
  3. FENTANYL. [Concomitant]
     Active Substance: FENTANYL
     Dosage: UNK
  4. LEVOFLOXACIN. [Concomitant]
     Active Substance: LEVOFLOXACIN
     Dosage: UNK
  5. NOVOLOG [Concomitant]
     Active Substance: INSULIN ASPART
     Dosage: UNK
  6. ASPIRIN. [Concomitant]
     Active Substance: ASPIRIN
     Dosage: UNK
  7. METOPROLOL. [Concomitant]
     Active Substance: METOPROLOL
     Dosage: UNK
  8. LORATADINE. [Concomitant]
     Active Substance: LORATADINE
     Dosage: UNK
  9. TORSEMIDE. [Concomitant]
     Active Substance: TORSEMIDE
     Dosage: UNK
  10. AMLODIPINE [Concomitant]
     Active Substance: AMLODIPINE BESYLATE
     Dosage: UNK
  11. FERROUS [Concomitant]
     Active Substance: IRON
     Dosage: UNK
  12. GABAPENTIN. [Concomitant]
     Active Substance: GABAPENTIN
     Dosage: UNK
  13. PRAVASTATIN. [Concomitant]
     Active Substance: PRAVASTATIN
     Dosage: UNK
  14. CABOMETYX [Suspect]
     Active Substance: CABOZANTINIB S-MALATE
     Indication: RENAL CANCER
     Dosage: 40 MG, QD
     Dates: start: 20171219
  15. THERAGRAN [Concomitant]
     Active Substance: VITAMINS
     Dosage: UNK
  16. NORCO [Concomitant]
     Active Substance: ACETAMINOPHEN\HYDROCODONE BITARTRATE
     Dosage: UNK

REACTIONS (1)
  - Drug ineffective [Unknown]
